FAERS Safety Report 7910016-6 (Version None)
Quarter: 2011Q4

REPORT INFORMATION
  Report Type: 
  Country: None (occurrence: None)
  Receive Date: 20111111
  Receipt Date: 20111102
  Transmission Date: 20120403
  Serious: No
  Sender: FDA-Public Use
  Company Number: US-ROCHE-1007532

PATIENT
  Age: 50 Year
  Sex: Male

DRUGS (1)
  1. FUZEON [Suspect]
     Indication: HIV INFECTION
     Route: 058

REACTIONS (1)
  - EXPIRED DRUG ADMINISTERED [None]
